FAERS Safety Report 9520854 (Version 3)
Quarter: 2013Q4

REPORT INFORMATION
  Report Type: Spontaneous
  Country: JP (occurrence: None)
  Receive Date: 20130911
  Receipt Date: 20131018
  Transmission Date: 20140711
  Serious: Yes (Death)
  Sender: FDA-Public Use
  Company Number: ADR-2013-01586

PATIENT
  Age: 72 Year
  Sex: Male

DRUGS (1)
  1. GABALON INTRATHECAL [Suspect]
     Indication: SPINAL CORD INJURY

REACTIONS (2)
  - Choking [None]
  - Accidental death [None]
